FAERS Safety Report 16244939 (Version 1)
Quarter: 2019Q2

REPORT INFORMATION
  Report Type: Report from Study
  Country: CA (occurrence: CA)
  Receive Date: 20190426
  Receipt Date: 20190426
  Transmission Date: 20190711
  Serious: Yes (Other)
  Sender: FDA-Public Use
  Company Number: CA-JNJFOC-20190438447

PATIENT
  Age: 0 Year
  Sex: Female
  Weight: 2.7 kg

DRUGS (2)
  1. INFLIXIMAB RECOMBINANT [Suspect]
     Active Substance: INFLIXIMAB
     Indication: COLITIS ULCERATIVE
     Route: 064
     Dates: start: 20160915
  2. INFLIXIMAB RECOMBINANT [Suspect]
     Active Substance: INFLIXIMAB
     Indication: COLITIS ULCERATIVE
     Route: 064
     Dates: start: 20150904, end: 20160914

REACTIONS (2)
  - Foetal distress syndrome [Unknown]
  - Foetal exposure during pregnancy [Recovered/Resolved]

NARRATIVE: CASE EVENT DATE: 2016
